FAERS Safety Report 10097097 (Version 2)
Quarter: 2014Q2

REPORT INFORMATION
  Report Type: Spontaneous
  Country: US (occurrence: US)
  Receive Date: 20140422
  Receipt Date: 20140422
  Transmission Date: 20141212
  Serious: No
  Sender: FDA-Public Use
  Company Number: US-GILEAD-2012-0063329

PATIENT
  Age: 65 Year
  Sex: Female

DRUGS (1)
  1. LETAIRIS [Suspect]
     Indication: PULMONARY ARTERIAL HYPERTENSION
     Dosage: 5 MG, UNK
     Route: 048
     Dates: start: 20120321, end: 20121029

REACTIONS (6)
  - Cardiomegaly [Unknown]
  - Chest pain [Not Recovered/Not Resolved]
  - Treatment noncompliance [None]
  - Pleural effusion [Unknown]
  - Oedema peripheral [Unknown]
  - Fluid retention [Unknown]
